FAERS Safety Report 15703804 (Version 1)
Quarter: 2018Q4

REPORT INFORMATION
  Report Type: Spontaneous
  Country: US (occurrence: US)
  Receive Date: 20181127
  Receipt Date: 20181127
  Transmission Date: 20190205
  Serious: No
  Sender: FDA-Public Use
  Company Number: None

PATIENT

DRUGS (2)
  1. CALCIUM [Suspect]
     Active Substance: CALCIUM
  2. VITAMIN D3 [Suspect]
     Active Substance: CHOLECALCIFEROL

REACTIONS (2)
  - Product label confusion [None]
  - Product packaging quantity issue [None]

NARRATIVE: CASE EVENT DATE: 2018
